FAERS Safety Report 8284475 (Version 4)
Quarter: 2012Q4

REPORT INFORMATION
  Report Type: Report from Study
  Country: CA (occurrence: CA)
  Receive Date: 20111212
  Receipt Date: 20121116
  Transmission Date: 20130627
  Serious: Yes (Hospitalization)
  Sender: FDA-Public Use
  Company Number: CA-PFIZER INC-2011065807

PATIENT
  Age: 50 Year
  Sex: Female

DRUGS (6)
  1. BLINDED THERAPY [Suspect]
     Indication: NON-SMALL CELL LUNG CANCER
     Dosage: UNK
     Route: 030
     Dates: start: 20110105, end: 20110105
  2. ALTACE [Suspect]
     Indication: HYPERTENSION
     Dosage: 5 mg
     Route: 048
     Dates: start: 20101102, end: 20110127
  3. TENORMIN [Suspect]
     Dosage: 100 mg, UNK
     Route: 048
     Dates: start: 20091115
  4. RYTHMOL [Suspect]
     Indication: PALPITATION
     Dosage: 300 mg, UNK
     Route: 048
     Dates: start: 200810
  5. AREPANRIX H1N1 [Concomitant]
     Dosage: UNK
     Dates: start: 20091107, end: 20091107
  6. INDAPAMIDE [Concomitant]
     Dosage: UNK
     Dates: start: 20091115

REACTIONS (1)
  - Bradyarrhythmia [Recovered/Resolved]
